FAERS Safety Report 7218176-X (Version None)
Quarter: 2011Q1

REPORT INFORMATION
  Report Type: 
  Country: None (occurrence: None)
  Receive Date: 20110110
  Receipt Date: 20071008
  Transmission Date: 20110831
  Serious: Yes (Other)
  Sender: FDA-Public Use
  Company Number: PHRM2007FR02371

PATIENT
  Age: 73 Year
  Sex: Male

DRUGS (1)
  1. EXELON [Suspect]
     Indication: DEMENTIA ALZHEIMER'S TYPE
     Route: 048
     Dates: start: 20000101, end: 20060101

REACTIONS (8)
  - CAROTID SINUS SYNDROME [None]
  - CORONARY ARTERY STENOSIS [None]
  - CHEST PAIN [None]
  - LOSS OF CONSCIOUSNESS [None]
  - BLOOD PRESSURE DECREASED [None]
  - DRUG INEFFECTIVE [None]
  - BRADYCARDIA [None]
  - FALL [None]
